FAERS Safety Report 14457473 (Version 3)
Quarter: 2018Q1

REPORT INFORMATION
  Report Type: Spontaneous
  Country: US (occurrence: US)
  Receive Date: 20180130
  Receipt Date: 20180313
  Transmission Date: 20180509
  Serious: No
  Sender: FDA-Public Use
  Company Number: US-PFIZER INC-2018036852

PATIENT
  Age: 51 Year
  Sex: Male
  Weight: 107.5 kg

DRUGS (4)
  1. ADVIL [Suspect]
     Active Substance: IBUPROFEN
     Dosage: 2 ADVIL IN THE MORNING AND 2 ADVIL AT NIGHT IF HE NEEDED
  2. ADVIL [Suspect]
     Active Substance: IBUPROFEN
     Dosage: 8 DF, DAILY
  3. ACETAMINOPHEN. [Suspect]
     Active Substance: ACETAMINOPHEN
     Dosage: UNK
  4. ADVIL [Suspect]
     Active Substance: IBUPROFEN
     Dosage: PROBABLY ONLY TOOK 6 ADVIL PER DAY

REACTIONS (6)
  - Muscle disorder [Unknown]
  - Renal disorder [Unknown]
  - Intentional overdose [Unknown]
  - Movement disorder [Unknown]
  - Musculoskeletal pain [Unknown]
  - Muscle spasms [Unknown]
